FAERS Safety Report 9330713 (Version 1)
Quarter: 2013Q2

REPORT INFORMATION
  Report Type: Spontaneous
  Country: US (occurrence: None)
  Receive Date: 20130604
  Receipt Date: 20130604
  Transmission Date: 20140414
  Serious: No
  Sender: FDA-Public Use
  Company Number: None

PATIENT
  Age: 20 Year
  Sex: Female

DRUGS (1)
  1. MONO-LINYAH [Suspect]

REACTIONS (3)
  - Menorrhagia [None]
  - Metrorrhagia [None]
  - Product substitution issue [None]
